FAERS Safety Report 8518165-9 (Version None)
Quarter: 2012Q3

REPORT INFORMATION
  Report Type: 
  Country: None (occurrence: None)
  Receive Date: 20120718
  Receipt Date: 20111012
  Transmission Date: 20120928
  Serious: Yes (Hospitalization, Other)
  Sender: FDA-Public Use
  Company Number: US-BRISTOL-MYERS SQUIBB COMPANY-16158446

PATIENT
  Sex: Male

DRUGS (2)
  1. COUMADIN [Suspect]
     Indication: ATRIAL FIBRILLATION
     Dosage: TABS.
     Route: 048
     Dates: end: 20110901
  2. CELEBREX [Suspect]
     Indication: ARTHRITIS
     Dosage: CAPS,HARD.
     Route: 048
     Dates: start: 20100201, end: 20110901

REACTIONS (1)
  - GASTROINTESTINAL HAEMORRHAGE [None]
